FAERS Safety Report 9760183 (Version 1)
Quarter: 2013Q4

REPORT INFORMATION
  Report Type: Not Available
  Country: None (occurrence: US)
  Receive Date: 20131216
  Receipt Date: 20131216
  Transmission Date: 20140711
  Serious: Yes (Hospitalization)
  Sender: FDA-Public Use
  Company Number: US-ONYX-2013-1983

PATIENT
  Age: 80 Year
  Sex: Female

DRUGS (3)
  1. KYPROLIS [Suspect]
     Indication: PLASMA CELL MYELOMA
     Route: 042
     Dates: start: 20131111, end: 20131119
  2. LISINOPRIL [Concomitant]
     Indication: HYPERTENSION
  3. ACYCLOVIR [Concomitant]
     Indication: PRODUCT USED FOR UNKNOWN INDICATION

REACTIONS (5)
  - Dehydration [Unknown]
  - Blood potassium decreased [Unknown]
  - Dyspnoea [Recovering/Resolving]
  - Pulmonary oedema [Recovered/Resolved]
  - Cough [Unknown]
